FAERS Safety Report 9110472 (Version 1)
Quarter: 2013Q1

REPORT INFORMATION
  Report Type: Spontaneous
  Country: US (occurrence: US)
  Receive Date: 20130219
  Receipt Date: 20130219
  Transmission Date: 20140127
  Serious: Yes (Hospitalization)
  Sender: FDA-Public Use
  Company Number: US-BRACCO-008923

PATIENT
  Age: 81 Year
  Sex: Female

DRUGS (2)
  1. ISOVUE-M [Suspect]
     Indication: BACK PAIN
     Route: 037
     Dates: start: 20121207, end: 20121207
  2. ISOVUE-M [Suspect]
     Indication: SPINAL MYELOGRAM
     Route: 037
     Dates: start: 20121207, end: 20121207

REACTIONS (1)
  - Hallucination [Not Recovered/Not Resolved]
